FAERS Safety Report 9100216 (Version 2)
Quarter: 2013Q1

REPORT INFORMATION
  Report Type: Spontaneous
  Country: US (occurrence: US)
  Receive Date: 20130214
  Receipt Date: 20130314
  Transmission Date: 20140127
  Serious: Yes (Hospitalization)
  Sender: FDA-Public Use
  Company Number: US-JNJFOC-20130200628

PATIENT
  Age: 81 None
  Sex: Female
  Weight: 78.65 kg

DRUGS (3)
  1. XARELTO [Suspect]
     Indication: THROMBOSIS PROPHYLAXIS
     Route: 048
     Dates: start: 20130124, end: 20130131
  2. XARELTO [Suspect]
     Indication: KNEE OPERATION
     Route: 048
     Dates: start: 20130124, end: 20130131
  3. LAXATIVES UNSP [Concomitant]
     Indication: CONSTIPATION
     Route: 065

REACTIONS (3)
  - Muscle haemorrhage [Recovered/Resolved]
  - Myalgia [Recovered/Resolved]
  - Inappropriate schedule of drug administration [Recovered/Resolved]
